FAERS Safety Report 6850410-8 (Version None)
Quarter: 2010Q3

REPORT INFORMATION
  Report Type: 
  Country: None (occurrence: None)
  Receive Date: 20100716
  Receipt Date: 20080229
  Transmission Date: 20110219
  Serious: Yes (Other)
  Sender: FDA-Public Use
  Company Number: US-PFIZER INC-2007088406

PATIENT
  Sex: Female
  Weight: 58.5 kg

DRUGS (8)
  1. CHANTIX [Suspect]
     Indication: TOBACCO USER
     Dates: start: 20070815, end: 20071218
  2. SEROQUEL [Concomitant]
  3. ACIPHEX [Concomitant]
  4. WELLBUTRIN [Concomitant]
  5. SYNTHROID [Concomitant]
  6. KLONOPIN [Concomitant]
  7. LACTULOSE [Concomitant]
  8. AMITIZA [Concomitant]

REACTIONS (2)
  - ALOPECIA [None]
  - TRANSIENT ISCHAEMIC ATTACK [None]
